FAERS Safety Report 11895063 (Version 1)
Quarter: 2016Q1

REPORT INFORMATION
  Report Type: Spontaneous
  Country: US (occurrence: None)
  Receive Date: 20160106
  Receipt Date: 20160106
  Transmission Date: 20160526
  Serious: No
  Sender: FDA-Public Use
  Company Number: None

PATIENT
  Age: 65 Year
  Sex: Female
  Weight: 54.43 kg

DRUGS (8)
  1. METHOTREXATE [Concomitant]
     Active Substance: METHOTREXATE
  2. MOBIC [Concomitant]
     Active Substance: MELOXICAM
  3. SYMBIOTE [Concomitant]
  4. STOOL SOFTENER [Concomitant]
     Active Substance: DOCUSATE CALCIUM
  5. ORAJEL INSTANT PAIN RELIEF MAXIMUM STRENGTH (BENZOCAINE) [Suspect]
     Active Substance: BENZALKONIUM CHLORIDE\BENZOCAINE\ZINC CHLORIDE
     Indication: GINGIVAL PAIN
     Route: 048
  6. FOLIC ACID. [Concomitant]
     Active Substance: FOLIC ACID
  7. MULTIVITAMIN [Concomitant]
     Active Substance: VITAMINS
  8. PLAQUENIL [Concomitant]
     Active Substance: HYDROXYCHLOROQUINE SULFATE

REACTIONS (5)
  - Gingival erythema [None]
  - Gingival swelling [None]
  - Scab [None]
  - Bone pain [None]
  - Gingival pain [None]

NARRATIVE: CASE EVENT DATE: 20151230
